FAERS Safety Report 23119420 (Version 2)
Quarter: 2023Q4

REPORT INFORMATION
  Report Type: Other
  Country: CA (occurrence: None)
  Receive Date: 20231028
  Receipt Date: 20231218
  Transmission Date: 20240110
  Serious: Yes (Hospitalization)
  Sender: FDA-Public Use
  Company Number: CA-ROCHE-3445637

PATIENT
  Sex: Male

DRUGS (3)
  1. OCREVUS [Suspect]
     Active Substance: OCRELIZUMAB
     Indication: Relapsing-remitting multiple sclerosis
     Dosage: 300 MG AT DAY 0 AND 14, THEN 600 MG EVERY 6 MONTHS
     Route: 042
     Dates: start: 20211105
  2. XARELTO [Concomitant]
     Active Substance: RIVAROXABAN
     Route: 065
  3. BACLOFEN [Concomitant]
     Active Substance: BACLOFEN

REACTIONS (2)
  - COVID-19 [Recovered/Resolved]
  - Thrombosis [Unknown]
